FAERS Safety Report 18212803 (Version 3)
Quarter: 2020Q3

REPORT INFORMATION
  Report Type: Report from Study
  Country: RU (occurrence: RU)
  Receive Date: 20200831
  Receipt Date: 20200921
  Transmission Date: 20201103
  Serious: Yes (Hospitalization, Other)
  Sender: FDA-Public Use
  Company Number: RU-VIIV HEALTHCARE LIMITED-RU2020GSK173446

PATIENT
  Age: 32 Year
  Sex: Female
  Weight: 85 kg

DRUGS (2)
  1. DOLUTEGRAVIR [Suspect]
     Active Substance: DOLUTEGRAVIR
     Indication: HIV INFECTION
     Dosage: 50 MG, (1 TABLET)
     Dates: start: 20200709, end: 20200817
  2. HEPTAVIR [Concomitant]
     Indication: HIV INFECTION
     Dosage: 150 MG (2 TABLETS)
     Dates: start: 20200709, end: 20200817

REACTIONS (1)
  - Autoimmune hepatitis [Recovering/Resolving]

NARRATIVE: CASE EVENT DATE: 20200810
